FAERS Safety Report 23136315 (Version 2)
Quarter: 2023Q4

REPORT INFORMATION
  Report Type: Spontaneous
  Country: FR (occurrence: FR)
  Receive Date: 20231102
  Receipt Date: 20231114
  Transmission Date: 20240110
  Serious: Yes (Hospitalization, Other)
  Sender: FDA-Public Use
  Company Number: None

PATIENT
  Age: 18 Year
  Sex: Male

DRUGS (1)
  1. IBUPROFEN [Suspect]
     Active Substance: IBUPROFEN
     Indication: Cheilitis
     Dosage: 400 MILLIGRAM
     Route: 065

REACTIONS (8)
  - Abscess of eyelid [Recovered/Resolved]
  - Cellulitis [Recovered/Resolved]
  - Cellulitis gangrenous [Recovered/Resolved]
  - Lip infection [Recovered/Resolved]
  - Septic embolus [Recovered/Resolved]
  - Skin infection [Recovered/Resolved]
  - Staphylococcal sepsis [Recovered/Resolved]
  - Self-medication [Unknown]
